FAERS Safety Report 9775165 (Version 4)
Quarter: 2014Q2

REPORT INFORMATION
  Report Type: Report from Study
  Country: ES (occurrence: ES)
  Receive Date: 20131220
  Receipt Date: 20140417
  Transmission Date: 20141212
  Serious: Yes (Hospitalization)
  Sender: FDA-Public Use
  Company Number: ES-EISAI INC-E7389-04534-CLI-ES

PATIENT
  Age: 76 Year
  Sex: Male

DRUGS (7)
  1. E7389 (BOLD) [Suspect]
     Indication: BLADDER CANCER
     Route: 041
     Dates: start: 20130808, end: 20131210
  2. GEMCITABINE [Concomitant]
     Indication: BLADDER CANCER
     Route: 041
     Dates: start: 20130808, end: 20131210
  3. CISPLATIN [Concomitant]
     Indication: BLADDER CANCER
     Route: 041
     Dates: start: 20130808, end: 20131210
  4. ACETYLSALICYLIC ACID [Concomitant]
     Indication: PROPHYLAXIS
     Route: 048
  5. ATORVASTATIN [Concomitant]
     Indication: PROPHYLAXIS
     Route: 048
  6. TRANSFUSION OF RED BOOD CELLS [Concomitant]
     Indication: ANAEMIA
  7. TRANSFUSION OF PLATELETS [Concomitant]
     Indication: PLATELET COUNT DECREASED

REACTIONS (2)
  - Haematuria [Recovered/Resolved]
  - Pneumothorax [Recovered/Resolved]
